FAERS Safety Report 25371715 (Version 3)
Quarter: 2025Q2

REPORT INFORMATION
  Report Type: Report from Study
  Country: KR (occurrence: KR)
  Receive Date: 20250529
  Receipt Date: 20250626
  Transmission Date: 20250716
  Serious: Yes (Hospitalization, Other)
  Sender: ABBVIE
  Company Number: KR-ABBVIE-6302182

PATIENT
  Age: 59 Year
  Sex: Female
  Weight: 54 kg

DRUGS (14)
  1. SKYRIZI [Suspect]
     Active Substance: RISANKIZUMAB-RZAA
     Indication: Psoriasis
     Route: 058
     Dates: start: 20240620, end: 20240620
  2. SKYRIZI [Suspect]
     Active Substance: RISANKIZUMAB-RZAA
     Route: 058
     Dates: start: 20241205, end: 20241205
  3. SKYRIZI [Suspect]
     Active Substance: RISANKIZUMAB-RZAA
     Route: 058
     Dates: start: 20240912, end: 20240912
  4. SKYRIZI [Suspect]
     Active Substance: RISANKIZUMAB-RZAA
     Route: 058
     Dates: start: 20250227, end: 20250227
  5. SKYRIZI [Suspect]
     Active Substance: RISANKIZUMAB-RZAA
     Route: 058
     Dates: start: 20250522, end: 20250522
  6. SKYRIZI [Suspect]
     Active Substance: RISANKIZUMAB-RZAA
     Route: 058
     Dates: start: 20240523, end: 20240523
  7. ATORVASTATIN [Concomitant]
     Active Substance: ATORVASTATIN
     Indication: Cerebrovascular accident
     Route: 048
     Dates: start: 20220609
  8. COZAAR [Concomitant]
     Active Substance: LOSARTAN POTASSIUM
     Indication: Hypertension
     Route: 048
     Dates: start: 20180906, end: 20250507
  9. TRESIBA [Concomitant]
     Active Substance: INSULIN DEGLUDEC
     Indication: Diabetes mellitus
     Dosage: 100U/ML
     Route: 058
     Dates: start: 20180906
  10. VEMLIDY [Concomitant]
     Active Substance: TENOFOVIR ALAFENAMIDE FUMARATE
     Indication: Hepatitis B
     Route: 048
     Dates: start: 20230425
  11. NICORANDIL [Concomitant]
     Active Substance: NICORANDIL
     Indication: Coronary artery disease
     Dosage: 5 MG
     Route: 048
     Dates: start: 20241023
  12. FIASP [Concomitant]
     Active Substance: INSULIN ASPART
     Indication: Diabetes mellitus
     Route: 058
     Dates: start: 20201111
  13. BONVIVA PLUS [Concomitant]
     Indication: Osteoporosis
     Route: 048
     Dates: start: 20211028, end: 20241110
  14. HERBEN RETARD [Concomitant]
     Indication: Coronary artery disease
     Dosage: 90 MG
     Route: 048
     Dates: start: 20241015

REACTIONS (2)
  - Hepatic cancer [Recovered/Resolved]
  - Coronary artery disease [Recovered/Resolved]

NARRATIVE: CASE EVENT DATE: 20241015
